FAERS Safety Report 24556508 (Version 1)
Quarter: 2024Q4

REPORT INFORMATION
  Report Type: Spontaneous
  Country: US (occurrence: None)
  Receive Date: 20241027
  Receipt Date: 20241027
  Transmission Date: 20250114
  Serious: Yes (Other)
  Sender: Public
  Company Number: None

PATIENT
  Age: 65 Year
  Sex: Female
  Weight: 63 kg

DRUGS (2)
  1. WEGOVY [Suspect]
     Active Substance: SEMAGLUTIDE
     Indication: Weight decreased
     Dosage: OTHER QUANTITY : 1 INJECTION(S);?OTHER FREQUENCY : ONCE A WEEK;?OTHER ROUTE : INJECTED INTO THIGH;?
     Route: 050
  2. VITAMIN C [Concomitant]
     Active Substance: ASCORBIC ACID

REACTIONS (9)
  - Diarrhoea [None]
  - Vomiting [None]
  - Abdominal pain [None]
  - Asthenia [None]
  - Dry mouth [None]
  - Dizziness [None]
  - Tremor [None]
  - Constipation [None]
  - Asthenia [None]

NARRATIVE: CASE EVENT DATE: 20240916
